FAERS Safety Report 10419530 (Version 1)
Quarter: 2014Q3

REPORT INFORMATION
  Report Type: Spontaneous
  Country: US (occurrence: US)
  Receive Date: 20140829
  Receipt Date: 20140829
  Transmission Date: 20150326
  Serious: Yes (Other)
  Sender: FDA-Public Use
  Company Number: US-PFIZER INC-2014237580

PATIENT
  Age: 54 Year
  Sex: Male
  Weight: 117.91 kg

DRUGS (4)
  1. LYRICA [Suspect]
     Active Substance: PREGABALIN
     Indication: NEURALGIA
     Dosage: 50 MG, 1X/DAY
     Route: 048
     Dates: start: 2013
  2. LYRICA [Suspect]
     Active Substance: PREGABALIN
     Dosage: 150 MG, UNK
     Route: 048
  3. LYRICA [Suspect]
     Active Substance: PREGABALIN
     Dosage: 100 MG, UNK
     Route: 048
  4. LYRICA [Suspect]
     Active Substance: PREGABALIN
     Dosage: 200 MG, UNK
     Route: 048

REACTIONS (5)
  - Drug dependence [Unknown]
  - Drug withdrawal syndrome [Unknown]
  - Intentional overdose [Unknown]
  - Pollakiuria [Unknown]
  - Therapeutic response changed [Unknown]
